FAERS Safety Report 7859937-3 (Version None)
Quarter: 2011Q4

REPORT INFORMATION
  Report Type: 
  Country: None (occurrence: None)
  Receive Date: 20111026
  Receipt Date: 20111026
  Transmission Date: 20120403
  Serious: Yes (Hospitalization)
  Sender: FDA-Public Use
  Company Number: None

PATIENT
  Age: 67 Year
  Sex: Male
  Weight: 91.4 kg

DRUGS (1)
  1. ASPIRIN [Suspect]
     Indication: PAIN
     Dosage: 4 TAB EVERY DAY PO
     Route: 048
     Dates: start: 20110611, end: 20110710

REACTIONS (2)
  - GASTRIC HAEMORRHAGE [None]
  - NAUSEA [None]
